FAERS Safety Report 17578849 (Version 2)
Quarter: 2020Q2

REPORT INFORMATION
  Report Type: Report from Study
  Country: US (occurrence: US)
  Receive Date: 20200324
  Receipt Date: 20200508
  Transmission Date: 20200713
  Serious: Yes (Life-Threatening, Hospitalization)
  Sender: FDA-Public Use
  Company Number: US-ACTELION-A-US2020-203323

PATIENT
  Age: 0 Day
  Sex: Female

DRUGS (5)
  1. UPTRAVI [Suspect]
     Active Substance: SELEXIPAG
     Indication: MATERNAL EXPOSURE DURING PREGNANCY
     Dosage: 1600 MCG, BID
     Route: 064
  2. PEPCID [Concomitant]
     Active Substance: FAMOTIDINE
     Dosage: 20 UNK, QD
  3. TADALAFIL. [Suspect]
     Active Substance: TADALAFIL
     Indication: MATERNAL EXPOSURE DURING PREGNANCY
     Dosage: 40 MG, QD
     Route: 064
  4. LASIX [Concomitant]
     Active Substance: FUROSEMIDE
     Dosage: 40 UNK, QD
  5. VELETRI [Suspect]
     Active Substance: EPOPROSTENOL
     Indication: MATERNAL EXPOSURE DURING PREGNANCY
     Dosage: UNK
     Route: 064
     Dates: end: 20200304

REACTIONS (3)
  - Foetal distress syndrome [Unknown]
  - Premature baby [Unknown]
  - Maternal exposure during pregnancy [Unknown]

NARRATIVE: CASE EVENT DATE: 20200304
